FAERS Safety Report 22627861 (Version 1)
Quarter: 2023Q2

REPORT INFORMATION
  Report Type: Spontaneous
  Country: US (occurrence: US)
  Receive Date: 20230622
  Receipt Date: 20230622
  Transmission Date: 20230721
  Serious: No
  Sender: FDA-Public Use
  Company Number: US-AZURITY PHARMACEUTICALS, INC.-US-2023ARB003161

PATIENT

DRUGS (3)
  1. THYQUIDITY [Suspect]
     Active Substance: LEVOTHYROXINE SODIUM
     Indication: Hypothyroidism
     Dosage: 7 ML, PER DAY
     Dates: start: 20230331, end: 202304
  2. THYQUIDITY [Suspect]
     Active Substance: LEVOTHYROXINE SODIUM
     Dosage: 6 ML, PER DAY
     Dates: start: 202304
  3. CYTOMEL [Concomitant]
     Active Substance: LIOTHYRONINE SODIUM
     Indication: Hypothyroidism
     Dosage: 10 MICROGRAM, PER DAY
     Dates: start: 2004

REACTIONS (3)
  - Tinnitus [Not Recovered/Not Resolved]
  - Vertigo [Not Recovered/Not Resolved]
  - Pain [Not Recovered/Not Resolved]

NARRATIVE: CASE EVENT DATE: 20230401
